FAERS Safety Report 17756544 (Version 1)
Quarter: 2020Q2

REPORT INFORMATION
  Report Type: Spontaneous
  Country: DK (occurrence: DK)
  Receive Date: 20200507
  Receipt Date: 20200507
  Transmission Date: 20200714
  Serious: Yes (Hospitalization)
  Sender: FDA-Public Use
  Company Number: NVSC2020DK123067

PATIENT
  Age: 83 Year
  Sex: Male
  Weight: 68.9 kg

DRUGS (12)
  1. BICALUTAMID ^SANDOZ^ [Suspect]
     Active Substance: BICALUTAMIDE
     Dosage: STYRKE: 150 MG.
     Route: 048
     Dates: start: 20200123
  2. KALEORID [Concomitant]
     Active Substance: POTASSIUM CHLORIDE
     Indication: MINERAL SUPPLEMENTATION
     Dosage: 1500 MG, QD
     Route: 048
     Dates: start: 20161112
  3. FUROSEMID ORIFARM [Concomitant]
     Active Substance: FUROSEMIDE
     Indication: DIURETIC THERAPY
     Dosage: 40 MG
     Route: 048
     Dates: start: 20161112
  4. PAMORELIN [Suspect]
     Active Substance: TRIPTORELIN PAMOATE
     Indication: PROSTATE CANCER
     Dosage: 11.25 MG, QW
     Route: 042
     Dates: start: 20200122
  5. OCULAC [Concomitant]
     Indication: DRY EYE
     Dosage: 1 GTT, PRN (DROP AS NEEDED, AT MOST 4 TIMES DAILY)
     Route: 050
     Dates: start: 20151118
  6. DIGOXIN ^DAK^ [Concomitant]
     Active Substance: DIGOXIN
     Indication: ATRIAL FIBRILLATION
     Dosage: 125 UG, QD
     Route: 048
     Dates: start: 20170508
  7. LOSARTAN. [Concomitant]
     Active Substance: LOSARTAN
     Indication: HYPERTENSION
     Dosage: 50 MG, QD
     Route: 048
     Dates: start: 20190503
  8. PENOMAX [Concomitant]
     Active Substance: PIVMECILLINAM HYDROCHLORIDE
     Indication: CYSTITIS
     Dosage: 1200 MG, QD
     Route: 048
     Dates: start: 20200208, end: 20200210
  9. LANSOPRAZOL KRKA [Concomitant]
     Indication: GASTROOESOPHAGEAL REFLUX DISEASE
     Dosage: 30 MG, QD
     Route: 048
     Dates: start: 20190925
  10. DONEPEZIL STADA [Concomitant]
     Indication: DEMENTIA WITH LEWY BODIES
     Dosage: 5 MG, QD
     Route: 048
     Dates: start: 20190822
  11. METOPROLOLSUCCINAT HEXAL [Concomitant]
     Active Substance: METOPROLOL SUCCINATE
     Indication: ATRIAL FIBRILLATION
     Dosage: 150 MG, QD
     Route: 048
     Dates: start: 20161112
  12. BACLOFEN. [Concomitant]
     Active Substance: BACLOFEN
     Indication: MUSCLE SPASMS
     Dosage: 30 MG, QD
     Route: 048
     Dates: start: 20160114

REACTIONS (3)
  - Glycosylated haemoglobin increased [Unknown]
  - Blood glucose abnormal [Unknown]
  - Diabetes mellitus [Not Recovered/Not Resolved]

NARRATIVE: CASE EVENT DATE: 20200208
